FAERS Safety Report 15254195 (Version 2)
Quarter: 2018Q4

REPORT INFORMATION
  Report Type: Spontaneous
  Country: IT (occurrence: IT)
  Receive Date: 20180808
  Receipt Date: 20180830
  Transmission Date: 20190204
  Serious: No
  Sender: FDA-Public Use
  Company Number: IT-AUROBINDO-AUR-APL-2018-040497

PATIENT

DRUGS (3)
  1. AMOXICILLIN. [Suspect]
     Active Substance: AMOXICILLIN
     Dosage: 10 ML, BID
     Route: 048
  2. AMOXICILLIN. [Suspect]
     Active Substance: AMOXICILLIN
     Indication: PYREXIA
     Dosage: ()
     Route: 065
  3. AMOXICILLIN. [Suspect]
     Active Substance: AMOXICILLIN
     Indication: FEBRILE CONVULSION
     Dosage: 5 G PER 100 ML (1 G/DAY)
     Route: 048

REACTIONS (3)
  - Hoigne^s syndrome [Recovered/Resolved]
  - Hallucination, auditory [Recovered/Resolved]
  - Hallucination, visual [Recovered/Resolved]
